FAERS Safety Report 8875953 (Version 1)
Quarter: 2012Q4

REPORT INFORMATION
  Report Type: 
  Country: IT (occurrence: IT)
  Receive Date: 20121023
  Receipt Date: 20121023
  Transmission Date: 20130627
  Serious: Yes (Death)
  Sender: FDA-Public Use
  Company Number: IT-GLAXOSMITHKLINE-B0839625A

PATIENT
  Age: 80 Year
  Sex: Female

DRUGS (8)
  1. ARIXTRA [Suspect]
     Indication: PULMONARY EMBOLISM
     Route: 058
     Dates: start: 20120928, end: 20121006
  2. OMEPRAZOLE [Concomitant]
     Route: 048
  3. DOXAZOSINA [Concomitant]
     Route: 048
  4. LUVION [Concomitant]
     Route: 048
  5. SPIRIVA [Concomitant]
  6. SYMBICORT [Concomitant]
  7. LASIX [Concomitant]
     Route: 048
  8. DELTACORTENE [Concomitant]
     Route: 048

REACTIONS (3)
  - Cerebral haemorrhage [Fatal]
  - Hydrocephalus [Not Recovered/Not Resolved]
  - Coma [Not Recovered/Not Resolved]
